FAERS Safety Report 5052015-0 (Version None)
Quarter: 2006Q3

REPORT INFORMATION
  Report Type: 
  Country: None (occurrence: None)
  Receive Date: 20060711
  Receipt Date: 20060627
  Transmission Date: 20061208
  Serious: Yes (Other)
  Sender: FDA-Public Use
  Company Number: 226826

PATIENT
  Sex: Female

DRUGS (1)
  1. RITUXAN [Suspect]
     Indication: WALDENSTROM'S MACROGLOBULINAEMIA

REACTIONS (7)
  - BLOOD IMMUNOGLOBULIN M INCREASED [None]
  - EXTREMITY NECROSIS [None]
  - HEADACHE [None]
  - OSTEONECROSIS [None]
  - POST PROCEDURAL NAUSEA [None]
  - REBOUND EFFECT [None]
  - TOE AMPUTATION [None]
